FAERS Safety Report 13738471 (Version 1)
Quarter: 2017Q3

REPORT INFORMATION
  Report Type: Spontaneous
  Country: US (occurrence: US)
  Receive Date: 20170710
  Receipt Date: 20170710
  Transmission Date: 20171127
  Serious: Yes (Other)
  Sender: FDA-Public Use
  Company Number: US-SAOL THERAPEUTICS-2016SAO01274

PATIENT
  Age: 15 Year
  Sex: Female

DRUGS (2)
  1. BACLOFEN. [Suspect]
     Active Substance: BACLOFEN
     Dosage: 700 ?G, \DAY
     Dates: start: 2016, end: 2016
  2. BACLOFEN. [Suspect]
     Active Substance: BACLOFEN
     Dosage: 100 ?G, \DAY
     Dates: start: 20161216

REACTIONS (2)
  - Therapeutic response decreased [Recovered/Resolved]
  - Device occlusion [Recovered/Resolved]

NARRATIVE: CASE EVENT DATE: 2016
